FAERS Safety Report 24793350 (Version 2)
Quarter: 2025Q3

REPORT INFORMATION
  Report Type: Spontaneous
  Country: US (occurrence: US)
  Receive Date: 20241231
  Receipt Date: 20250809
  Transmission Date: 20251021
  Serious: Yes (Other)
  Sender: ALEXION PHARMACEUTICALS
  Company Number: US-ASTRAZENECA-202412USA023918US

PATIENT
  Age: 64 Year
  Sex: Female

DRUGS (5)
  1. FARXIGA [Suspect]
     Active Substance: DAPAGLIFLOZIN PROPANEDIOL
     Route: 065
  2. CRESTOR [Suspect]
     Active Substance: ROSUVASTATIN CALCIUM
     Route: 065
  3. CARVEDILOL [Suspect]
     Active Substance: CARVEDILOL
     Dosage: 12.5 MILLIGRAM, BID
  4. ENTRESTO [Suspect]
     Active Substance: SACUBITRIL\VALSARTAN
  5. LATANOPROST [Suspect]
     Active Substance: LATANOPROST
     Route: 065

REACTIONS (9)
  - Cardiomyopathy [Unknown]
  - Glaucoma [Unknown]
  - Somnolence [Unknown]
  - Sleep apnoea syndrome [Unknown]
  - Taste disorder [Unknown]
  - Hepatic lesion [Unknown]
  - Keratomileusis [Unknown]
  - Fatigue [Unknown]
  - Insomnia [Unknown]
